FAERS Safety Report 4862382-6 (Version None)
Quarter: 2005Q4

REPORT INFORMATION
  Report Type: 
  Country: None (occurrence: None)
  Receive Date: 20051221
  Receipt Date: 20051212
  Transmission Date: 20060501
  Serious: Yes (Other)
  Sender: FDA-Public Use
  Company Number: JP-JNJFOC-20051104487

PATIENT
  Age: 46 Year
  Sex: Male

DRUGS (8)
  1. NEOPERIDOL [Suspect]
     Indication: SCHIZOPHRENIA
     Route: 030
     Dates: start: 19981202, end: 20051109
  2. HALOPERIDOL [Suspect]
     Indication: SCHIZOPHRENIA
     Route: 048
     Dates: start: 19980613, end: 20051109
  3. ZOTEPINE [Suspect]
     Indication: SCHIZOPHRENIA
     Route: 048
     Dates: start: 19981007, end: 20051108
  4. DISULFIRAM [Suspect]
     Route: 048
     Dates: start: 20000308, end: 20051109
  5. QUAZEPAM [Concomitant]
     Indication: SCHIZOPHRENIA
     Route: 048
     Dates: start: 20050518, end: 20051108
  6. PROMETHAZINE HCL [Concomitant]
     Indication: SCHIZOPHRENIA
     Route: 048
     Dates: start: 20000113, end: 20051109
  7. BIPERIDEN HYDROCHLORIDE TAB [Concomitant]
     Route: 048
  8. BIPERIDEN HYDROCHLORIDE TAB [Concomitant]
     Indication: SCHIZOPHRENIA
     Route: 048

REACTIONS (10)
  - BRADYCARDIA [None]
  - DRUG LEVEL INCREASED [None]
  - DYSPHAGIA [None]
  - EATING DISORDER [None]
  - EXTRAPYRAMIDAL DISORDER [None]
  - GAIT DISTURBANCE [None]
  - HYPOVITAMINOSIS [None]
  - LIVER DISORDER [None]
  - NEUROPATHY PERIPHERAL [None]
  - SALIVARY HYPERSECRETION [None]
